FAERS Safety Report 8851008 (Version 2)
Quarter: 2012Q4

REPORT INFORMATION
  Report Type: 
  Country: US (occurrence: US)
  Receive Date: 20121019
  Receipt Date: 20121226
  Transmission Date: 20130627
  Serious: No
  Sender: FDA-Public Use
  Company Number: US-PFIZER INC-2012260376

PATIENT
  Sex: Male

DRUGS (2)
  1. ZOLOFT [Suspect]
     Dosage: UNK
     Dates: start: 20091001, end: 20121003
  2. ZOLOFT [Suspect]
     Dosage: UNK

REACTIONS (2)
  - Thinking abnormal [Unknown]
  - Feeling jittery [Unknown]
